FAERS Safety Report 10566344 (Version 1)
Quarter: 2014Q4

REPORT INFORMATION
  Report Type: Report from Study
  Country: AR (occurrence: AR)
  Receive Date: 20141105
  Receipt Date: 20141105
  Transmission Date: 20150529
  Serious: Yes (Death)
  Sender: FDA-Public Use
  Company Number: PHHY2014AR141965

PATIENT
  Age: 77 Year
  Sex: Female

DRUGS (4)
  1. SEEBRI BREEZHALER [Suspect]
     Active Substance: GLYCOPYRROLATE
     Indication: LUNG DISORDER
     Dosage: 1 DF, QD
     Route: 055
     Dates: start: 201405, end: 20140525
  2. ONBREZ [Suspect]
     Active Substance: INDACATEROL
     Indication: OFF LABEL USE
     Dosage: 2 DF, QD
     Route: 055
     Dates: start: 201408
  3. SEEBRI BREEZHALER [Suspect]
     Active Substance: GLYCOPYRROLATE
     Indication: OFF LABEL USE
     Dosage: 1 DF, QD
     Route: 055
     Dates: start: 201408
  4. ONBREZ [Suspect]
     Active Substance: INDACATEROL
     Indication: LUNG DISORDER
     Dosage: 2 DF, QD
     Route: 055
     Dates: start: 201404, end: 20140525

REACTIONS (1)
  - Cardio-respiratory arrest [Fatal]

NARRATIVE: CASE EVENT DATE: 20140918
